FAERS Safety Report 18341752 (Version 1)
Quarter: 2020Q4

REPORT INFORMATION
  Report Type: Report from Study
  Country: None (occurrence: US)
  Receive Date: 20201005
  Receipt Date: 20201005
  Transmission Date: 20210113
  Serious: Yes (Hospitalization, Other)
  Sender: FDA-Public Use
  Company Number: US-ABBVIE-20K-163-3588984-00

PATIENT
  Age: 65 Year
  Sex: Male

DRUGS (1)
  1. IMBRUVICA [Suspect]
     Active Substance: IBRUTINIB
     Indication: NON-HODGKIN^S LYMPHOMA
     Route: 048

REACTIONS (6)
  - Dyspnoea [Unknown]
  - Blood sodium decreased [Unknown]
  - Aspiration [Unknown]
  - Brain neoplasm [Unknown]
  - White blood cell count decreased [Unknown]
  - Neoplasm skin [Unknown]

NARRATIVE: CASE EVENT DATE: 202009
